FAERS Safety Report 5806297-5 (Version None)
Quarter: 2008Q3

REPORT INFORMATION
  Report Type: 
  Country: None (occurrence: None)
  Receive Date: 20080710
  Receipt Date: 20080701
  Transmission Date: 20090109
  Serious: Yes (Hospitalization)
  Sender: FDA-Public Use
  Company Number: US-JNJFOC-20080701903

PATIENT
  Sex: Male
  Weight: 75.84 kg

DRUGS (2)
  1. RISPERDAL [Suspect]
     Indication: RESTLESSNESS
     Route: 048
  2. RIVASTIGMINE HYDROGEN TARTARATE [Concomitant]

REACTIONS (2)
  - SOMNOLENCE [None]
  - UNRESPONSIVE TO STIMULI [None]
